FAERS Safety Report 19203799 (Version 1)
Quarter: 2021Q2

REPORT INFORMATION
  Report Type: Spontaneous
  Country: GB (occurrence: GB)
  Receive Date: 20210503
  Receipt Date: 20210503
  Transmission Date: 20210717
  Serious: Yes (Other)
  Sender: FDA-Public Use
  Company Number: GB-AUROBINDO-AUR-APL-2021-017440

PATIENT
  Age: 25 Year
  Sex: Female
  Weight: 77 kg

DRUGS (3)
  1. DULOXETINE. [Suspect]
     Active Substance: DULOXETINE
     Dosage: 50 MILLIGRAM
     Route: 048
  2. DULOXETINE. [Suspect]
     Active Substance: DULOXETINE
     Dosage: 30 MILLIGRAM
     Route: 048
     Dates: end: 20210403
  3. DULOXETINE. [Suspect]
     Active Substance: DULOXETINE
     Indication: VULVOVAGINAL PAIN
     Dosage: 60 MILLIGRAM
     Route: 048
     Dates: start: 20191208

REACTIONS (5)
  - Tearfulness [Recovering/Resolving]
  - Influenza like illness [Recovering/Resolving]
  - Restless legs syndrome [Not Recovered/Not Resolved]
  - Off label use [Unknown]
  - Influenza [Not Recovered/Not Resolved]

NARRATIVE: CASE EVENT DATE: 20191208
